FAERS Safety Report 16803945 (Version 1)
Quarter: 2019Q3

REPORT INFORMATION
  Report Type: Spontaneous
  Country: US (occurrence: US)
  Receive Date: 20190913
  Receipt Date: 20190913
  Transmission Date: 20191005
  Serious: Yes (Hospitalization, Other)
  Sender: FDA-Public Use
  Company Number: US-GLAND PHARMA LIMITED-2074422

PATIENT
  Age: 66 Year
  Sex: Male

DRUGS (1)
  1. METOPROLOL TARTRATE. [Suspect]
     Active Substance: METOPROLOL TARTRATE
     Indication: HEART RATE

REACTIONS (4)
  - Oedema peripheral [None]
  - Hospitalisation [None]
  - Thrombosis [None]
  - Tachycardia [None]

NARRATIVE: CASE EVENT DATE: 2017
